FAERS Safety Report 8558999-8 (Version None)
Quarter: 2012Q3

REPORT INFORMATION
  Report Type: 
  Country: None (occurrence: None)
  Receive Date: 20120802
  Receipt Date: 20120723
  Transmission Date: 20120928
  Serious: Yes (Hospitalization)
  Sender: FDA-Public Use
  Company Number: US-BIOGENIDEC-2012BI023194

PATIENT
  Age: 34 Year
  Sex: Female

DRUGS (7)
  1. RESTORIL [Concomitant]
  2. TOPAMAX [Concomitant]
  3. LEVOTHYROXINE SODIUM [Concomitant]
  4. LYRICA [Concomitant]
  5. CYMBALTA [Concomitant]
  6. TYSABRI [Suspect]
     Indication: MULTIPLE SCLEROSIS
     Route: 042
     Dates: start: 20110401
  7. PROTONIX [Concomitant]

REACTIONS (1)
  - SERUM SICKNESS [None]
